FAERS Safety Report 8548921-2 (Version None)
Quarter: 2012Q3

REPORT INFORMATION
  Report Type: 
  Country: None (occurrence: None)
  Receive Date: 20120730
  Receipt Date: 20120727
  Transmission Date: 20120928
  Serious: Yes (Other)
  Sender: FDA-Public Use
  Company Number: PHHY2012AU062580

PATIENT
  Sex: Female

DRUGS (3)
  1. FEMARA [Suspect]
     Dosage: UNK UKN, UNK
  2. LETROZOLE [Suspect]
     Indication: BREAST CANCER
     Dosage: UNK UKN, UNK
     Dates: start: 20120601
  3. FEMARA [Suspect]
     Indication: BREAST CANCER
     Dosage: UNK UKN, UNK
     Route: 048
     Dates: start: 20090101, end: 20120601

REACTIONS (1)
  - PNEUMONIA [None]
